FAERS Safety Report 23304731 (Version 1)
Quarter: 2023Q4

REPORT INFORMATION
  Report Type: Spontaneous
  Country: US (occurrence: None)
  Receive Date: 20231218
  Receipt Date: 20231218
  Transmission Date: 20240110
  Serious: Yes (Death)
  Sender: FDA-Public Use
  Company Number: 2023A285588

PATIENT
  Age: 50 Year
  Sex: Female

DRUGS (7)
  1. QUETIAPINE [Suspect]
     Active Substance: QUETIAPINE
  2. LISINOPRIL [Suspect]
     Active Substance: LISINOPRIL
  3. METOPROLOL [Suspect]
     Active Substance: METOPROLOL
  4. AMLODIPINE [Suspect]
     Active Substance: AMLODIPINE BESYLATE
  5. DULOXETINE [Suspect]
     Active Substance: DULOXETINE
  6. PRAZOSIN [Suspect]
     Active Substance: PRAZOSIN
  7. GABAPENTIN [Suspect]
     Active Substance: GABAPENTIN

REACTIONS (2)
  - Toxicity to various agents [Fatal]
  - Completed suicide [Fatal]
